FAERS Safety Report 9207511 (Version 1)
Quarter: 2013Q2

REPORT INFORMATION
  Report Type: Spontaneous
  Country: US (occurrence: None)
  Receive Date: 20130402
  Receipt Date: 20130402
  Transmission Date: 20140414
  Serious: Yes (Life-Threatening, Other)
  Sender: FDA-Public Use
  Company Number: None

PATIENT
  Age: 66 Year
  Sex: Male
  Weight: 88.45 kg

DRUGS (3)
  1. CEFEPIME [Suspect]
     Indication: OSTEOMYELITIS
     Dosage: EVERY 12 HOURS
     Route: 041
     Dates: start: 20130313, end: 20130401
  2. DAPTOMYCIN -CUBICIN- 550MG [Concomitant]
  3. METRONIDAZOLE 500MG [Concomitant]

REACTIONS (2)
  - Muscle twitching [None]
  - Myoclonus [None]
